FAERS Safety Report 12182091 (Version 3)
Quarter: 2016Q2

REPORT INFORMATION
  Report Type: Spontaneous
  Country: US (occurrence: US)
  Receive Date: 20160315
  Receipt Date: 20160411
  Transmission Date: 20160815
  Serious: Yes (Other)
  Sender: FDA-Public Use
  Company Number: US-TEVA-643735USA

PATIENT
  Age: 71 Year
  Sex: Female

DRUGS (2)
  1. VALSARTAN. [Suspect]
     Active Substance: VALSARTAN
  2. TETRACYCLINE [Concomitant]
     Active Substance: TETRACYCLINE
     Indication: SMALL INTESTINAL BACTERIAL OVERGROWTH

REACTIONS (2)
  - Coeliac disease [Recovered/Resolved]
  - Weight decreased [Unknown]
